FAERS Safety Report 7556228-5 (Version None)
Quarter: 2011Q2

REPORT INFORMATION
  Report Type: 
  Country: None (occurrence: None)
  Receive Date: 20110615
  Receipt Date: 20110615
  Transmission Date: 20111010
  Serious: Yes (Death, Hospitalization)
  Sender: FDA-Public Use
  Company Number: None

PATIENT
  Age: 80 Year
  Sex: Female
  Weight: 83 kg

DRUGS (10)
  1. BENAZEPRIL HYDROCHLORIDE [Concomitant]
  2. CARVEDILOL [Concomitant]
  3. FUROSEMIDE [Concomitant]
  4. POTASSIUM CHLORIDE [Concomitant]
  5. VICODIN [Concomitant]
  6. PRADAXA [Suspect]
     Indication: ATRIAL FIBRILLATION
     Dosage: 75MG BID PO
     Route: 048
     Dates: start: 20110502, end: 20110530
  7. PRADAXA [Suspect]
     Indication: DEEP VEIN THROMBOSIS
     Dosage: 75MG BID PO
     Route: 048
     Dates: start: 20110502, end: 20110530
  8. ALBUTEROL SULFATE AUTOHALER [Concomitant]
  9. CIPROFLOXACIN [Concomitant]
  10. THEOPHYLLINE [Concomitant]

REACTIONS (7)
  - HAEMOPTYSIS [None]
  - ERYTHEMA [None]
  - IDIOPATHIC THROMBOCYTOPENIC PURPURA [None]
  - MOUTH HAEMORRHAGE [None]
  - PETECHIAE [None]
  - BLOOD BLISTER [None]
  - HAEMATOMA [None]
